FAERS Safety Report 8496506-9 (Version None)
Quarter: 2012Q3

REPORT INFORMATION
  Report Type: 
  Country: None (occurrence: None)
  Receive Date: 20120709
  Receipt Date: 20120628
  Transmission Date: 20120928
  Serious: Yes (Hospitalization, Other)
  Sender: FDA-Public Use
  Company Number: US-ACTELION-A-NJ2012-64722

PATIENT

DRUGS (6)
  1. TRACLEER [Suspect]
     Indication: PULMONARY ARTERIAL HYPERTENSION
     Dosage: UNK
     Route: 048
  2. DIGOXIN [Concomitant]
  3. NEXIUM [Concomitant]
  4. SILDENAFIL [Concomitant]
  5. PLAVIX [Concomitant]
  6. ASPIRIN [Concomitant]

REACTIONS (8)
  - BLOOD POTASSIUM INCREASED [None]
  - CHEST PAIN [None]
  - DIALYSIS [None]
  - ANAEMIA [None]
  - TRANSFUSION [None]
  - GASTROOESOPHAGEAL REFLUX DISEASE [None]
  - ARTERIAL OCCLUSIVE DISEASE [None]
  - DIZZINESS [None]
